FAERS Safety Report 5004062-2 (Version None)
Quarter: 2006Q2

REPORT INFORMATION
  Report Type: 
  Country: None (occurrence: None)
  Receive Date: 20060515
  Receipt Date: 20060515
  Transmission Date: 20061013
  Serious: Yes (Hospitalization)
  Sender: FDA-Public Use
  Company Number: None

PATIENT
  Age: 71 Year
  Sex: Male
  Weight: 97.4 kg

DRUGS (3)
  1. HURRICAINE SPRAY [Suspect]
     Indication: LOCAL ANAESTHESIA
     Dosage: (DURATION: ONE TIME)
     Dates: start: 20060420, end: 20060420
  2. VERSED [Concomitant]
  3. FENTANYL [Concomitant]

REACTIONS (2)
  - BLOOD METHAEMOGLOBIN PRESENT [None]
  - SKIN DISCOLOURATION [None]
